FAERS Safety Report 25055189 (Version 1)
Quarter: 2025Q1

REPORT INFORMATION
  Report Type: Spontaneous
  Country: US (occurrence: US)
  Receive Date: 20250308
  Receipt Date: 20250308
  Transmission Date: 20250409
  Serious: Yes (Other)
  Sender: ANI
  Company Number: US-ANIPHARMA-015946

PATIENT
  Sex: Female

DRUGS (4)
  1. METOCLOPRAMIDE [Suspect]
     Active Substance: METOCLOPRAMIDE
     Indication: Migraine
     Dates: start: 202307
  2. BENADRYL [Concomitant]
     Active Substance: DIPHENHYDRAMINE HYDROCHLORIDE
     Indication: Product used for unknown indication
  3. TYLENOL [Concomitant]
     Active Substance: ACETAMINOPHEN
     Indication: Product used for unknown indication
  4. RIMEGEPANT [Concomitant]
     Active Substance: RIMEGEPANT
     Indication: Product used for unknown indication

REACTIONS (2)
  - Gestational diabetes [Unknown]
  - Exposure during pregnancy [Unknown]

NARRATIVE: CASE EVENT DATE: 20230915
